FAERS Safety Report 4268797-1 (Version None)
Quarter: 2004Q1

REPORT INFORMATION
  Report Type: 
  Country: None (occurrence: None)
  Receive Date: 20040112
  Receipt Date: 20040112
  Transmission Date: 20041129
  Serious: Yes (Hospitalization)
  Sender: FDA-Public Use
  Company Number: None

PATIENT
  Age: 88 Year
  Sex: Female
  Weight: 68.9467 kg

DRUGS (16)
  1. CISPLATIN [Suspect]
     Indication: LUNG NEOPLASM MALIGNANT
     Dosage: 130 MG
     Dates: start: 20031119
  2. CISPLATIN [Suspect]
     Indication: LUNG NEOPLASM MALIGNANT
     Dosage: 130 MG
     Dates: start: 20031217
  3. GEMZAR [Suspect]
     Dosage: 2100MG; 1570MG
     Dates: start: 20031119
  4. GEMZAR [Suspect]
     Dosage: 2100MG; 1570MG
     Dates: start: 20031203
  5. GEMZAR [Suspect]
     Dosage: 2100MG; 1570MG
     Dates: start: 20031217
  6. GEMZAR [Suspect]
     Dosage: 2100MG; 1570MG
     Dates: start: 20031224
  7. CHEST RADIATION [Concomitant]
  8. TAXOL [Concomitant]
  9. TIAZAC [Concomitant]
  10. ACIPHEX [Concomitant]
  11. PAXIL [Concomitant]
  12. COZAAR [Concomitant]
  13. HYDROCHLOROTHIAZIDE [Concomitant]
  14. RESTORIL [Concomitant]
  15. ZOFRAN [Concomitant]
  16. PHENERGAN HCL [Concomitant]

REACTIONS (2)
  - ANGIONEUROTIC OEDEMA [None]
  - BLOOD PRESSURE DIASTOLIC INCREASED [None]
